FAERS Safety Report 14165113 (Version 2)
Quarter: 2018Q1

REPORT INFORMATION
  Report Type: Report from Study
  Country: US (occurrence: US)
  Receive Date: 20171107
  Receipt Date: 20180127
  Transmission Date: 20180508
  Serious: Yes (Hospitalization, Other)
  Sender: FDA-Public Use
  Company Number: US-UCBSA-2017044407

PATIENT
  Sex: Male

DRUGS (1)
  1. ROTIGOTINE [Suspect]
     Active Substance: ROTIGOTINE
     Indication: PARKINSON^S DISEASE
     Dosage: 2MG PATCH

REACTIONS (4)
  - Fall [Unknown]
  - Back injury [Unknown]
  - Post procedural complication [Unknown]
  - Injury [Unknown]

NARRATIVE: CASE EVENT DATE: 2017
